FAERS Safety Report 9276038 (Version 1)
Quarter: 2012Q4

REPORT INFORMATION
  Report Type: Spontaneous
  Country: JP (occurrence: None)
  Receive Date: 20121109
  Receipt Date: 20121109
  Transmission Date: 20130627
  Serious: Yes (Other)
  Sender: FDA-Public Use
  Company Number: 2012S1000513

PATIENT

DRUGS (17)
  1. CUBICIN [Suspect]
     Indication: DRUG USE FOR UNKNOWN INDICATION
     Route: 042
     Dates: start: 20120525, end: 20120607
  2. ERYTHROMYCIN LACTOBIONATE [Suspect]
     Indication: DRUG USE FOR UNKNOWN INDICATION
     Dosage: U U ; UNK ; PARN
     Route: 051
     Dates: end: 20120607
  3. SULBACTAM SODIUM [Concomitant]
  4. HANP [Concomitant]
  5. FUROSEMIDE [Concomitant]
  6. ERYTHROMYCIN LACTOBIONATE (ERYTHROMYCIN LACTOBIONATE) [Concomitant]
  7. FUROSEMIDE [Concomitant]
  8. DOBUTAMINE [Concomitant]
  9. HYDROCHLORIDE [Concomitant]
  10. DEXMEDETOMIDE HYDROCHLORIDE [Concomitant]
  11. MIDAZOLAM [Concomitant]
  12. ALL OTHER THERAPEUTIC PRODUCTS [Concomitant]
  13. AMINO ACIDS [Concomitant]
  14. VITAJECT [Suspect]
  15. ALL OTHER THERAPEUTIC PRODUCTS [Concomitant]
  16. PANTHENOL [Concomitant]
  17. ANTITHROMBIN I I I [Concomitant]

REACTIONS (5)
  - Drug-induced liver injury [None]
  - Intentional drug misuse [None]
  - Aspartate aminotransferase increased [None]
  - Alanine aminotransferase increased [None]
  - Gamma-glutamyltransferase [None]
